FAERS Safety Report 6858475-4 (Version None)
Quarter: 2010Q3

REPORT INFORMATION
  Report Type: 
  Country: None (occurrence: None)
  Receive Date: 20100719
  Receipt Date: 20100709
  Transmission Date: 20110219
  Serious: Yes (Death, Hospitalization, Other)
  Sender: FDA-Public Use
  Company Number: GB-MERCK-0805GBR00034

PATIENT
  Age: 68 Year
  Sex: Female

DRUGS (13)
  1. FOSAMAX [Suspect]
     Route: 048
  2. LEVOTHYROXINE SODIUM [Concomitant]
     Indication: THYROID DISORDER
     Route: 065
     Dates: start: 19940101
  3. TIOTROPIUM BROMIDE [Concomitant]
     Route: 055
  4. CALCIUM CARBONATE [Concomitant]
     Route: 065
  5. METOCLOPRAMIDE [Concomitant]
     Route: 065
  6. ALBUTEROL [Concomitant]
     Route: 065
  7. VERAPAMIL HYDROCHLORIDE [Concomitant]
     Route: 065
  8. SIMVASTATIN [Concomitant]
     Route: 065
  9. ASPIRIN [Concomitant]
     Route: 065
  10. PENTOXIFYLLINE [Concomitant]
     Route: 065
  11. CALCIUM CARBONATE AND CHOLECALCIFEROL [Concomitant]
     Route: 065
  12. CHLORHEXIDINE GLUCONATE [Concomitant]
     Route: 065
  13. ACETAMINOPHEN AND CODEINE PHOSPHATE [Concomitant]
     Route: 065

REACTIONS (5)
  - ANXIETY [None]
  - DEATH [None]
  - JAW FRACTURE [None]
  - OSTEOMYELITIS [None]
  - OSTEONECROSIS OF JAW [None]
